FAERS Safety Report 10729919 (Version 1)
Quarter: 2015Q1

REPORT INFORMATION
  Report Type: Spontaneous
  Country: US (occurrence: US)
  Receive Date: 20150122
  Receipt Date: 20150122
  Transmission Date: 20150721
  Serious: No
  Sender: FDA-Public Use
  Company Number: US-ASTRAZENECA-2014SE91121

PATIENT
  Sex: Female

DRUGS (4)
  1. VIMOVO [Suspect]
     Active Substance: ESOMEPRAZOLE MAGNESIUM\NAPROXEN
     Indication: MUSCULOSKELETAL DISCOMFORT
     Dosage: TWO TIMES A DAY
     Route: 048
  2. VIMOVO [Suspect]
     Active Substance: ESOMEPRAZOLE MAGNESIUM\NAPROXEN
     Indication: BACK DISORDER
     Dosage: ONE TABLET A DAY
     Route: 048
  3. VIMOVO [Suspect]
     Active Substance: ESOMEPRAZOLE MAGNESIUM\NAPROXEN
     Indication: BACK DISORDER
     Dosage: TWO TIMES A DAY
     Route: 048
  4. VIMOVO [Suspect]
     Active Substance: ESOMEPRAZOLE MAGNESIUM\NAPROXEN
     Indication: MUSCULOSKELETAL DISCOMFORT
     Dosage: ONE TABLET A DAY
     Route: 048

REACTIONS (1)
  - Weight increased [Unknown]
